FAERS Safety Report 12460454 (Version 5)
Quarter: 2017Q3

REPORT INFORMATION
  Report Type: Report from Study
  Country: TW (occurrence: TW)
  Receive Date: 20160613
  Receipt Date: 20170816
  Transmission Date: 20171127
  Serious: Yes (Hospitalization)
  Sender: FDA-Public Use
  Company Number: TW-BAYER-2016-108211

PATIENT
  Sex: Male

DRUGS (25)
  1. DEXAMETHASONE. [Concomitant]
     Active Substance: DEXAMETHASONE
     Indication: PROPHYLAXIS
     Dosage: 5 MG, QD
     Dates: start: 20160602, end: 20160726
  2. METOCLOPRAMIDE. [Concomitant]
     Active Substance: METOCLOPRAMIDE
     Dosage: 10 MG, QD
     Dates: start: 20160823, end: 20160823
  3. MORPHINE [Concomitant]
     Active Substance: MORPHINE
     Dosage: 3 MG, QD
     Dates: start: 20160823, end: 20160823
  4. NALBUPHINE [Concomitant]
     Active Substance: NALBUPHINE
     Dosage: 5 MG, QD
     Dates: start: 20160825, end: 20160825
  5. STIVARGA [Suspect]
     Active Substance: REGORAFENIB
     Indication: COLORECTAL CANCER METASTATIC
     Dosage: 3 TABLETS X 40 MG
     Dates: start: 20160505, end: 20160518
  6. DIPHENHYDRAMINE. [Concomitant]
     Active Substance: DIPHENHYDRAMINE
     Indication: PROPHYLAXIS
     Dosage: 30 MG, QD
     Dates: start: 20160602, end: 20160726
  7. STIVARGA [Suspect]
     Active Substance: REGORAFENIB
     Indication: COLORECTAL CANCER METASTATIC
     Dosage: 3 X 40 MG (RE-ESCALATION)
     Dates: start: 20160527, end: 20160527
  8. FUROSEMIDE. [Concomitant]
     Active Substance: FUROSEMIDE
     Dosage: DAILY DOSE 80 MG
     Dates: start: 20160526, end: 20160601
  9. BUTYLSCOPOLAMIN [Concomitant]
     Indication: PROPHYLAXIS
     Dosage: 20 MG, QD
     Dates: start: 20160602, end: 20160726
  10. STIVARGA [Suspect]
     Active Substance: REGORAFENIB
     Indication: COLORECTAL CANCER METASTATIC
     Dosage: 80 MG, QD
     Dates: start: 20160810, end: 20160901
  11. CODEINE [Concomitant]
     Active Substance: CODEINE
     Dosage: DAILY DOSE 120 MG
     Dates: start: 20160331
  12. ULTRACET [Concomitant]
     Active Substance: ACETAMINOPHEN\TRAMADOL HYDROCHLORIDE
     Dosage: DAILY DOSE 150 MG
     Dates: start: 20151208
  13. PALONOSETRON [Concomitant]
     Active Substance: PALONOSETRON
     Indication: PROPHYLAXIS
     Dosage: 0.25 MG, QD
     Dates: start: 20160602, end: 20160726
  14. ESOMEPRAZOLE [Concomitant]
     Active Substance: ESOMEPRAZOLE
     Dosage: 80 MG, QD
     Dates: start: 20160823, end: 20160823
  15. FLOMOXEF [Concomitant]
     Active Substance: FLOMOXEF
     Dosage: 3 G, QD
     Dates: start: 20160824, end: 20160826
  16. DIPHENHYDRAMINE. [Concomitant]
     Active Substance: DIPHENHYDRAMINE
     Indication: PROPHYLAXIS
     Dosage: 30 MG, QD
     Dates: start: 20160823, end: 20160823
  17. ATROPINE. [Concomitant]
     Active Substance: ATROPINE
     Indication: PROPHYLAXIS
     Dosage: 0.5 MG, QD
     Dates: start: 20160602, end: 20160726
  18. ESOMEPRAZOLE [Concomitant]
     Active Substance: ESOMEPRAZOLE
     Dosage: 200 MG, QD
     Dates: start: 20160824, end: 20160826
  19. STIVARGA [Suspect]
     Active Substance: REGORAFENIB
     Indication: COLORECTAL CANCER METASTATIC
     Dosage: 2 TABLETS X 40 MG (RE-ESCALATION)
     Dates: start: 20160602, end: 20160726
  20. CAMPTO [Concomitant]
     Active Substance: IRINOTECAN
     Dosage: UNK
     Dates: start: 20160602
  21. IRINOTECAN [Concomitant]
     Active Substance: IRINOTECAN
     Dosage: UNK
     Dates: start: 20160602, end: 20160726
  22. LOPERAMIDE [Concomitant]
     Active Substance: LOPERAMIDE
     Dosage: 6 MG, QD
     Dates: start: 20160616, end: 20160725
  23. GRANISETRON [Concomitant]
     Active Substance: GRANISETRON
     Dosage: 2 MG, QD
     Dates: start: 20160630, end: 20160725
  24. MORPHINE [Concomitant]
     Active Substance: MORPHINE
     Dosage: 4 MG, QD
     Dates: start: 20160824, end: 20160824
  25. TRANEXAMIC ACID. [Concomitant]
     Active Substance: TRANEXAMIC ACID
     Dosage: 750 MG, QD
     Dates: start: 20160823, end: 20160823

REACTIONS (1)
  - Pneumonitis [Recovered/Resolved]

NARRATIVE: CASE EVENT DATE: 20160527
